FAERS Safety Report 10386040 (Version 1)
Quarter: 2014Q1

REPORT INFORMATION
  Report Type: Spontaneous
  Country: US (occurrence: None)
  Receive Date: 20140306
  Receipt Date: 20140306
  Transmission Date: 20141002
  Serious: Yes (Other)
  Sender: FDA-Public Use
  Company Number: 163-21880-13071018

PATIENT
  Age: 73 Year
  Sex: Male
  Weight: 86.18 kg

DRUGS (6)
  1. REVLIMID ( LENALIDOMIDE) ( 25 MILLIGRAM, CAPSULES) [Suspect]
     Indication: PLASMA CELL MYELOMA
     Route: 048
     Dates: start: 20101210
  2. PROTONIX (TABLETS) [Concomitant]
  3. LASIX (FUROSEMIDE) (TABLETS) [Concomitant]
  4. PROVENTIL HFA (SALBUTAMOL) [Concomitant]
  5. HYDRALAZINE HCL [Concomitant]
  6. VITAMIN B-6 (PYRIDOXINE HYDROCHLORIDE) (TABLETS) [Concomitant]

REACTIONS (4)
  - Joint swelling [None]
  - Local swelling [None]
  - Arthralgia [None]
  - Pain in extremity [None]
